FAERS Safety Report 9059258 (Version 2)
Quarter: 2013Q2

REPORT INFORMATION
  Report Type: Spontaneous
  Country: DE (occurrence: DE)
  Receive Date: 20130211
  Receipt Date: 20130401
  Transmission Date: 20140414
  Serious: Yes (Other)
  Sender: FDA-Public Use
  Company Number: DE-ROCHE-1187438

PATIENT
  Age: 84 Year
  Sex: Female
  Weight: 73 kg

DRUGS (14)
  1. MABTHERA [Suspect]
     Indication: CHRONIC LYMPHOCYTIC LEUKAEMIA
     Dosage: 6 CYCLES
     Route: 042
     Dates: start: 201004, end: 201010
  2. MABTHERA [Suspect]
     Route: 042
     Dates: start: 20120918, end: 20121113
  3. FLUDARABINE [Suspect]
     Indication: CHRONIC LYMPHOCYTIC LEUKAEMIA
     Route: 042
     Dates: start: 20120822, end: 20121115
  4. CYCLOPHOSPHAMIDE [Suspect]
     Indication: CHRONIC LYMPHOCYTIC LEUKAEMIA
     Route: 042
     Dates: start: 20120822, end: 20121115
  5. BENDAMUSTINE [Concomitant]
     Indication: CHRONIC LYMPHOCYTIC LEUKAEMIA
     Dosage: 6 CYCLES
     Route: 065
     Dates: start: 201004, end: 201010
  6. GRANISETRON [Concomitant]
     Route: 048
     Dates: start: 20120822, end: 20121115
  7. GRANISETRON [Concomitant]
     Route: 042
     Dates: start: 20120825, end: 20121116
  8. EMEND [Concomitant]
     Dosage: 125/80/80
     Route: 048
     Dates: start: 20120822, end: 20121115
  9. COTRIM FORTE [Concomitant]
     Dosage: UO+DO
     Route: 048
     Dates: start: 20120822, end: 20130125
  10. FOLINIC ACID [Concomitant]
     Dosage: UO+DO
     Route: 048
     Dates: start: 20120822, end: 20130125
  11. AMPHO MORONAL [Concomitant]
     Route: 048
     Dates: start: 20120822, end: 20121127
  12. OMEPRAZOL [Concomitant]
     Route: 048
     Dates: start: 20120822, end: 20121127
  13. ALLOPURINOL [Concomitant]
     Route: 048
     Dates: start: 20120822, end: 20121127
  14. NEULASTA [Concomitant]
     Route: 058
     Dates: start: 20121019, end: 20121116

REACTIONS (7)
  - Neutropenia [Not Recovered/Not Resolved]
  - Gastrointestinal disorder [Unknown]
  - Vascular compression [Unknown]
  - Thrombocytopenia [Not Recovered/Not Resolved]
  - Chronic lymphocytic leukaemia recurrent [Recovered/Resolved]
  - Anaemia [Unknown]
  - Leukopenia [Unknown]
